FAERS Safety Report 9691986 (Version 1)
Quarter: 2013Q4

REPORT INFORMATION
  Report Type: Spontaneous
  Country: CH (occurrence: CH)
  Receive Date: 20131118
  Receipt Date: 20131118
  Transmission Date: 20140711
  Serious: Yes (Hospitalization)
  Sender: FDA-Public Use
  Company Number: CH-009507513-1311CHE005331

PATIENT
  Age: 84 Year
  Sex: Male

DRUGS (4)
  1. INVANZ [Suspect]
     Indication: URINARY TRACT INFECTION
     Dosage: DAILY DOSE: 1 G, ONCE DAILY
     Route: 042
     Dates: start: 20131001, end: 20131023
  2. MARCOUMAR [Suspect]
     Indication: ATRIAL FIBRILLATION
     Dosage: AS NECESSARY
     Route: 048
     Dates: start: 2013
  3. INHIBACE (CILAZAPRIL) [Suspect]
     Indication: HYPERTENSION
     Dosage: DAILY DOSE: 1 MG, ONCE DAILY
     Route: 048
  4. ANTRAMUPS [Concomitant]

REACTIONS (3)
  - Pleural effusion [Not Recovered/Not Resolved]
  - Dyspnoea [Recovering/Resolving]
  - Eosinophil count increased [Not Recovered/Not Resolved]
